FAERS Safety Report 21025644 (Version 1)
Quarter: 2022Q2

REPORT INFORMATION
  Report Type: Spontaneous
  Country: US (occurrence: US)
  Receive Date: 20220630
  Receipt Date: 20220630
  Transmission Date: 20220720
  Serious: Yes (Death, Other)
  Sender: FDA-Public Use
  Company Number: US-SA-SAC20220628001008

PATIENT
  Age: 80 Year
  Sex: Female

DRUGS (1)
  1. ZANTAC [Suspect]
     Active Substance: RANITIDINE HYDROCHLORIDE
     Indication: Dyspepsia
     Dosage: UNK,FREQUENCY: OTHER
     Route: 065
     Dates: start: 199801, end: 201904

REACTIONS (2)
  - Colorectal cancer stage II [Fatal]
  - Small intestine carcinoma stage II [Fatal]

NARRATIVE: CASE EVENT DATE: 20131201
